FAERS Safety Report 22094027 (Version 1)
Quarter: 2023Q1

REPORT INFORMATION
  Report Type: Spontaneous
  Country: CA (occurrence: CA)
  Receive Date: 20230314
  Receipt Date: 20230314
  Transmission Date: 20230418
  Serious: Yes (Hospitalization, Other)
  Sender: FDA-Public Use
  Company Number: CA-002147023-NVSC2023CA053264

PATIENT
  Age: 9 Month
  Sex: Male

DRUGS (1)
  1. HYDROCORTISONE [Suspect]
     Active Substance: HYDROCORTISONE
     Indication: Rash pruritic
     Route: 061

REACTIONS (10)
  - Blood thyroid stimulating hormone increased [Recovered/Resolved]
  - Decreased appetite [Recovered/Resolved]
  - Fontanelle bulging [Recovered/Resolved]
  - Hypothyroidism [Recovered/Resolved]
  - Idiopathic intracranial hypertension [Recovered/Resolved]
  - Infant irritability [Recovered/Resolved]
  - Infantile vomiting [Recovered/Resolved]
  - Papilloedema [Recovered/Resolved]
  - Pyrexia [Recovered/Resolved]
  - Thyroxine free decreased [Recovered/Resolved]
